FAERS Safety Report 6595231-9 (Version None)
Quarter: 2010Q1

REPORT INFORMATION
  Report Type: 
  Country: None (occurrence: None)
  Receive Date: 20100212
  Receipt Date: 20100118
  Transmission Date: 20100710
  Serious: Yes (Other)
  Sender: FDA-Public Use
  Company Number: DSA_452592_2010

PATIENT
  Age: 61 Year
  Sex: Male

DRUGS (2)
  1. TILDIEM 200 MG (NOT SPECIFIED) [Suspect]
     Indication: DRUG USE FOR UNKNOWN INDICATION
     Dosage: 200 MG, FREQUENCY ORAL
     Route: 048
  2. TILDIEM RETARD - DILTIAZEM HYDROCHLORIDE EXENDED RELEASE 120 MG [Suspect]
     Indication: DRUG USE FOR UNKNOWN INDICATION
     Dosage: 120 MG, FREQUENCY ORAL
     Route: 048

REACTIONS (2)
  - DRUG EFFECT DECREASED [None]
  - EXERCISE TOLERANCE DECREASED [None]
